FAERS Safety Report 18570393 (Version 1)
Quarter: 2020Q4

REPORT INFORMATION
  Report Type: Spontaneous
  Country: US (occurrence: US)
  Receive Date: 20201202
  Receipt Date: 20201202
  Transmission Date: 20210114
  Serious: Yes (Death, Other)
  Sender: FDA-Public Use
  Company Number: None

PATIENT
  Sex: Female

DRUGS (1)
  1. DRONABINOL 2.5MG CAPSULES [Suspect]
     Active Substance: DRONABINOL

REACTIONS (1)
  - Death [None]
